FAERS Safety Report 16391948 (Version 1)
Quarter: 2019Q2

REPORT INFORMATION
  Report Type: Spontaneous
  Country: US (occurrence: US)
  Receive Date: 20190605
  Receipt Date: 20190605
  Transmission Date: 20190711
  Serious: No
  Sender: FDA-Public Use
  Company Number: US-ROCHE-2223678

PATIENT
  Sex: Female
  Weight: 69.01 kg

DRUGS (2)
  1. BENADRYL [Concomitant]
     Active Substance: DIPHENHYDRAMINE HYDROCHLORIDE
     Indication: PREMEDICATION
     Dosage: ONGOING: UNKNOWN
     Route: 065
     Dates: start: 20181127
  2. OCREVUS [Suspect]
     Active Substance: OCRELIZUMAB
     Indication: RELAPSING-REMITTING MULTIPLE SCLEROSIS
     Dosage: ONGOING: YES?SECOND INFUSION ON 11/DEC/2018
     Route: 042
     Dates: start: 20181127

REACTIONS (9)
  - Nausea [Not Recovered/Not Resolved]
  - Lethargy [Unknown]
  - Headache [Unknown]
  - Insomnia [Unknown]
  - Fatigue [Unknown]
  - Cough [Unknown]
  - Migraine [Unknown]
  - Gait disturbance [Not Recovered/Not Resolved]
  - Neck pain [Unknown]
